FAERS Safety Report 4357227-7 (Version None)
Quarter: 2004Q2

REPORT INFORMATION
  Report Type: 
  Country: None (occurrence: None)
  Receive Date: 20040512
  Receipt Date: 20040512
  Transmission Date: 20050107
  Serious: Yes (Other)
  Sender: FDA-Public Use
  Company Number: None

PATIENT
  Age: 45 Year
  Sex: Female

DRUGS (1)
  1. ALLEGRA [Suspect]
     Indication: MULTIPLE ALLERGIES
     Dosage: 180 MG QD PO
     Route: 048
     Dates: start: 20030505

REACTIONS (1)
  - BACK PAIN [None]
